FAERS Safety Report 4666355-8 (Version None)
Quarter: 2005Q2

REPORT INFORMATION
  Report Type: 
  Country: None (occurrence: None)
  Receive Date: 20050517
  Receipt Date: 20050502
  Transmission Date: 20051028
  Serious: Yes (Hospitalization, Other)
  Sender: FDA-Public Use
  Company Number: US_0505116849

PATIENT
  Sex: Female

DRUGS (1)
  1. STRATTERA [Suspect]
     Dosage: 18 MG DAY
     Dates: start: 20041102

REACTIONS (6)
  - CSF PRESSURE INCREASED [None]
  - HEADACHE [None]
  - NAUSEA [None]
  - PAPILLOEDEMA [None]
  - PARALYSIS [None]
  - VOMITING [None]
